FAERS Safety Report 10011689 (Version 1)
Quarter: 2014Q1

REPORT INFORMATION
  Report Type: Spontaneous
  Country: NL (occurrence: NL)
  Receive Date: 20140314
  Receipt Date: 20140314
  Transmission Date: 20141002
  Serious: Yes (Hospitalization)
  Sender: FDA-Public Use
  Company Number: PHHY2014NL031154

PATIENT
  Sex: Female

DRUGS (1)
  1. AFINITOR [Suspect]

REACTIONS (2)
  - Fluid retention [Unknown]
  - Pleural effusion [Unknown]
